FAERS Safety Report 19909564 (Version 2)
Quarter: 2021Q4

REPORT INFORMATION
  Report Type: Report from Study
  Country: US (occurrence: US)
  Receive Date: 20211001
  Receipt Date: 20211012
  Transmission Date: 20220303
  Serious: Yes (Death, Hospitalization)
  Sender: FDA-Public Use
  Company Number: US-VIELABIO-VIE-2021-US-000107

PATIENT

DRUGS (2)
  1. UPLIZNA [Suspect]
     Active Substance: INEBILIZUMAB-CDON
     Indication: Neuromyelitis optica spectrum disorder
     Dosage: 1ST INFUSION
     Route: 065
     Dates: start: 20210304
  2. UPLIZNA [Suspect]
     Active Substance: INEBILIZUMAB-CDON
     Dosage: 2ND INFUSION
     Route: 065
     Dates: start: 20210319

REACTIONS (4)
  - Hypertensive crisis [Fatal]
  - Acute kidney injury [Fatal]
  - Fatigue [Unknown]
  - Headache [Unknown]
